FAERS Safety Report 7065829-2 (Version None)
Quarter: 2010Q4

REPORT INFORMATION
  Report Type: 
  Country: None (occurrence: None)
  Receive Date: 20101027
  Receipt Date: 20101014
  Transmission Date: 20110411
  Serious: Yes (Other)
  Sender: FDA-Public Use
  Company Number: FR-ELI_LILLY_AND_COMPANY-FR201010003212

PATIENT
  Age: 54 Year
  Sex: Female

DRUGS (1)
  1. GEMZAR [Suspect]
     Indication: TUMOUR FLARE
     Dosage: 1750 MG, UNKNOWN
     Route: 042
     Dates: start: 20100721

REACTIONS (1)
  - CHOLESTASIS [None]
